FAERS Safety Report 11955955 (Version 2)
Quarter: 2016Q3

REPORT INFORMATION
  Report Type: Spontaneous
  Country: US (occurrence: US)
  Receive Date: 20160126
  Receipt Date: 20160713
  Transmission Date: 20161109
  Serious: Yes (Death, Hospitalization, Other)
  Sender: FDA-Public Use
  Company Number: US-009507513-1601USA009359

PATIENT
  Sex: Male
  Weight: 149.66 kg

DRUGS (3)
  1. BYETTA [Suspect]
     Active Substance: EXENATIDE
     Dosage: 5 MICROGRAM, UNK
     Dates: start: 20070921, end: 200712
  2. BYETTA [Suspect]
     Active Substance: EXENATIDE
     Indication: TYPE 2 DIABETES MELLITUS
     Dosage: 10 MICROGRAM, UNK
     Dates: start: 20070605, end: 200709
  3. JANUMET [Suspect]
     Active Substance: METFORMIN HYDROCHLORIDE\SITAGLIPTIN PHOSPHATE
     Indication: TYPE 2 DIABETES MELLITUS
     Dosage: 50-1000 TAB BID
     Route: 048
     Dates: start: 20080829, end: 201011

REACTIONS (12)
  - Pancreatic neuroendocrine tumour metastatic [Fatal]
  - Diverticulum intestinal [Unknown]
  - Metastases to liver [Unknown]
  - Cholelithiasis [Unknown]
  - Delirium [Unknown]
  - Hallucination [Unknown]
  - Anaemia [Unknown]
  - Respiratory failure [Unknown]
  - Pneumonia [Unknown]
  - Cyst [Unknown]
  - Oesophageal obstruction [Unknown]
  - Chest pain [Unknown]

NARRATIVE: CASE EVENT DATE: 20120906
